FAERS Safety Report 10085818 (Version 1)
Quarter: 2014Q2

REPORT INFORMATION
  Report Type: Spontaneous
  Country: None (occurrence: None)
  Receive Date: 20140416
  Receipt Date: 20140416
  Transmission Date: 20141212
  Serious: Yes (Hospitalization, Other)
  Sender: FDA-Public Use
  Company Number: 08-AUR-04041

PATIENT
  Age: 63 Year
  Sex: Female

DRUGS (4)
  1. ATENOLOL (ATENOLOL) [Suspect]
     Indication: PRODUCT USED FOR UNKNOWN INDICATION
     Dosage: 50 MG, 1 IN 1 D
     Route: 048
  2. AZATHIOPRINE (AZATHIOPRINE) [Suspect]
     Indication: PRODUCT USED FOR UNKNOWN INDICATION
     Route: 048
     Dates: start: 20071217, end: 20080106
  3. MAXIDEX (DEXAMETHASONE) [Suspect]
     Indication: PRODUCT USED FOR UNKNOWN INDICATION
     Dosage: 1 %, 2 IN 1 D
     Route: 047
     Dates: start: 200710
  4. RAPAMUNE (SIROLIMUS) [Suspect]
     Indication: PRODUCT USED FOR UNKNOWN INDICATION
     Dosage: 3.5 MG, 1 IN 1 D
     Route: 048
     Dates: start: 200710

REACTIONS (5)
  - Renal failure acute [None]
  - Rhabdomyolysis [None]
  - Diarrhoea [None]
  - Vomiting [None]
  - Drug hypersensitivity [None]
